FAERS Safety Report 12209696 (Version 2)
Quarter: 2016Q2

REPORT INFORMATION
  Report Type: Report from Study
  Country: US (occurrence: US)
  Receive Date: 20160325
  Receipt Date: 20160408
  Transmission Date: 20160815
  Serious: Yes (Death, Other)
  Sender: FDA-Public Use
  Company Number: US-AMGEN-USASL2016036274

PATIENT
  Age: 79 Year
  Sex: Male

DRUGS (1)
  1. PROLIA [Suspect]
     Active Substance: DENOSUMAB
     Indication: OSTEOPOROSIS
     Dosage: 60 MG, Q6MO
     Route: 058
     Dates: start: 20110921

REACTIONS (4)
  - Chronic obstructive pulmonary disease [Unknown]
  - Death [Fatal]
  - Arteriosclerosis [Unknown]
  - Multimorbidity [Unknown]

NARRATIVE: CASE EVENT DATE: 20151222
